FAERS Safety Report 8192373-1 (Version None)
Quarter: 2012Q1

REPORT INFORMATION
  Report Type: 
  Country: None (occurrence: None)
  Receive Date: 20120308
  Receipt Date: 20120223
  Transmission Date: 20120608
  Serious: Yes (Life-Threatening, Hospitalization)
  Sender: FDA-Public Use
  Company Number: NO-AMGEN-US169212

PATIENT
  Age: 56 Year
  Sex: Female

DRUGS (13)
  1. ARAVA [Suspect]
     Indication: RHEUMATOID ARTHRITIS
     Dosage: 20 MG, 1X/DAY
     Dates: start: 20101101, end: 20110101
  2. ORENCIA [Suspect]
     Indication: RHEUMATOID ARTHRITIS
     Dosage: 40 MG,
     Dates: start: 20080501, end: 20100801
  3. LIPITOR [Concomitant]
     Dosage: 20 MG, 1X/DAY
     Route: 048
  4. INDERAL RETARD [Concomitant]
     Dosage: UNK
     Route: 048
  5. CALCIGRAN FORTE [Concomitant]
     Dosage: 1 GRAM DAILY
     Route: 048
  6. IMOVANE [Concomitant]
     Dosage: 7.5 MG, UNK
  7. IMOVANE [Concomitant]
     Dosage: 7.5 MG, 1X/DAY
     Route: 048
  8. LIPITOR [Concomitant]
     Dosage: 20 MG, UNK
  9. PREDNISOLONE [Concomitant]
     Indication: RHEUMATOID ARTHRITIS
     Dosage: UNK
     Dates: start: 19950501
  10. INDERAL RETARD [Concomitant]
     Dosage: 80 MG, QD
  11. INDERAL RETARD [Concomitant]
     Dosage: 80 MG, 1X/DAY
     Route: 048
  12. ENBREL [Suspect]
     Indication: RHEUMATOID ARTHRITIS
     Dosage: 50 MG, WEEKLY
     Route: 051
     Dates: start: 20050501, end: 20051201
  13. ASPIRIN [Concomitant]
     Dosage: 160 MG, QD

REACTIONS (2)
  - ANGIOEDEMA [None]
  - TYPE I HYPERSENSITIVITY [None]
